FAERS Safety Report 6065291-2 (Version None)
Quarter: 2009Q1

REPORT INFORMATION
  Report Type: 
  Country: None (occurrence: None)
  Receive Date: 20090204
  Receipt Date: 20090126
  Transmission Date: 20090719
  Serious: Yes (Other)
  Sender: FDA-Public Use
  Company Number: US-SANOFI-SYNTHELABO-A03200804109

PATIENT
  Sex: Male

DRUGS (1)
  1. AMBIEN [Suspect]
     Indication: SLEEP DISORDER
     Dosage: UNK
     Route: 048
     Dates: start: 20040301, end: 20050101

REACTIONS (19)
  - AGGRESSION [None]
  - AGITATION [None]
  - AMNESIA [None]
  - ANXIETY [None]
  - CONFUSIONAL STATE [None]
  - DEPRESSION [None]
  - DIZZINESS [None]
  - DRUG DEPENDENCE [None]
  - HALLUCINATION [None]
  - HEADACHE [None]
  - HYPERSENSITIVITY [None]
  - MEMORY IMPAIRMENT [None]
  - ROAD TRAFFIC ACCIDENT [None]
  - SLEEP SEX [None]
  - SLEEP TALKING [None]
  - SLEEP-RELATED EATING DISORDER [None]
  - SOMNAMBULISM [None]
  - SOMNOLENCE [None]
  - SUICIDE ATTEMPT [None]
